FAERS Safety Report 17105709 (Version 5)
Quarter: 2020Q2

REPORT INFORMATION
  Report Type: Spontaneous
  Country: CA (occurrence: CA)
  Receive Date: 20191203
  Receipt Date: 20200430
  Transmission Date: 20200713
  Serious: Yes (Death, Hospitalization, Other)
  Sender: FDA-Public Use
  Company Number: CA-PFIZER INC-2019518187

PATIENT
  Age: 57 Year
  Sex: Male

DRUGS (2)
  1. LORBRENA [Suspect]
     Active Substance: LORLATINIB
     Indication: LUNG NEOPLASM MALIGNANT
     Dosage: 100 MG, 1X/DAY
     Route: 048
     Dates: start: 20191122, end: 20200214
  2. HYDROMORPH CONTIN [Concomitant]
     Active Substance: HYDROMORPHONE
     Indication: DYSPNOEA
     Dosage: 3 MG, 2X/DAY (Q 12 H)
     Route: 048

REACTIONS (23)
  - Respiratory distress [Unknown]
  - Monocyte count increased [Unknown]
  - White blood cell count increased [Unknown]
  - Agitation [Unknown]
  - Movement disorder [Unknown]
  - Granulocytes abnormal [Unknown]
  - Delirium [Unknown]
  - Red cell distribution width increased [Unknown]
  - Neutrophil count increased [Unknown]
  - Pleural effusion [Unknown]
  - Decreased appetite [Unknown]
  - Blood glucose increased [Unknown]
  - Inflammation [Unknown]
  - Pulmonary oedema [Unknown]
  - Failure to thrive [Unknown]
  - Anion gap decreased [Unknown]
  - Dyspnoea [Unknown]
  - Haemoglobin decreased [Unknown]
  - Haematocrit decreased [Unknown]
  - Malaise [Unknown]
  - Neoplasm progression [Fatal]
  - Pneumonia [Unknown]
  - Carbon dioxide increased [Unknown]

NARRATIVE: CASE EVENT DATE: 202001
